FAERS Safety Report 10013418 (Version 4)
Quarter: 2014Q2

REPORT INFORMATION
  Report Type: Spontaneous
  Country: US (occurrence: US)
  Receive Date: 20140314
  Receipt Date: 20140613
  Transmission Date: 20141212
  Serious: Yes (Other)
  Sender: FDA-Public Use
  Company Number: US-PFIZER INC-2014073978

PATIENT
  Age: 44 Year
  Sex: Female
  Weight: 60.58 kg

DRUGS (10)
  1. LYRICA [Suspect]
     Indication: FIBROMYALGIA
     Dosage: UNK
     Route: 048
     Dates: start: 201009, end: 201309
  2. LYRICA [Suspect]
     Indication: ARTHRALGIA
     Dosage: 75 MG, 2X/DAY
     Route: 048
     Dates: start: 201402
  3. LYRICA [Suspect]
     Indication: NEURALGIA
     Dosage: 75 MG, 1X/DAY
     Route: 048
  4. LYRICA [Suspect]
     Indication: OSTEOARTHRITIS
  5. LYRICA [Suspect]
     Indication: RHEUMATOID ARTHRITIS
  6. KLONOPIN [Concomitant]
     Indication: ANXIETY
     Dosage: 0.5 MG, 3X/DAY
     Route: 048
  7. PROAIR HFA [Concomitant]
     Dosage: 8.5 MG, (1-2 PUF INH Q 4-6 PRN)
  8. FLEXERIL [Concomitant]
     Dosage: 10 MG, 3X/DAY
     Route: 048
  9. ESTRACE [Concomitant]
     Dosage: 0.01% (42.5 GM CR - 1 APPLIC VAG TWICE WEEKLY)
     Route: 067
  10. PERCOCET [Concomitant]
     Dosage: 1 DF, 3X/DAY (5MG-325MG)
     Route: 048

REACTIONS (17)
  - Asthma [Unknown]
  - Joint dislocation [Unknown]
  - Depression [Unknown]
  - Weight increased [Unknown]
  - Abdominal distension [Unknown]
  - Constipation [Unknown]
  - Cervical radiculopathy [Unknown]
  - Spinal osteoarthritis [Unknown]
  - Anxiety [Unknown]
  - Gastrooesophageal reflux disease [Unknown]
  - Migraine without aura [Unknown]
  - Pain [Unknown]
  - Tobacco abuse [Unknown]
  - Menopausal disorder [Unknown]
  - Drug ineffective [Unknown]
  - Malaise [Unknown]
  - Hypoacusis [Unknown]
